FAERS Safety Report 18712397 (Version 1)
Quarter: 2021Q1

REPORT INFORMATION
  Report Type: Spontaneous
  Country: US (occurrence: US)
  Receive Date: 20210107
  Receipt Date: 20210107
  Transmission Date: 20210419
  Serious: Yes (Death)
  Sender: FDA-Public Use
  Company Number: None

PATIENT
  Sex: Female
  Weight: 99 kg

DRUGS (13)
  1. IPRATROPIUM?ALBUTEROL [Concomitant]
     Active Substance: ALBUTEROL\IPRATROPIUM
  2. METFORMIN HCL [Concomitant]
     Active Substance: METFORMIN HYDROCHLORIDE
  3. HUMALOG KWIKPEN [Concomitant]
     Active Substance: INSULIN LISPRO
  4. FUROSEMIDE. [Concomitant]
     Active Substance: FUROSEMIDE
  5. AMLODIPINE BESYLATE. [Concomitant]
     Active Substance: AMLODIPINE BESYLATE
  6. ACETAMINOPHEN. [Concomitant]
     Active Substance: ACETAMINOPHEN
  7. FAMOTIDINE. [Concomitant]
     Active Substance: FAMOTIDINE
  8. IBRANCE [Suspect]
     Active Substance: PALBOCICLIB
     Indication: BREAST CANCER FEMALE
     Route: 048
     Dates: start: 20200420, end: 20210107
  9. METOPROLOL TARTRATE. [Concomitant]
     Active Substance: METOPROLOL TARTRATE
  10. ASPIRIN 81 [Concomitant]
     Active Substance: ASPIRIN
  11. LANTUS SOLOSTAR [Concomitant]
     Active Substance: INSULIN GLARGINE
  12. ANASTROZOLE. [Concomitant]
     Active Substance: ANASTROZOLE
  13. ALBUTEROL SULFATE HFA [Concomitant]
     Active Substance: ALBUTEROL SULFATE

REACTIONS (1)
  - Death [None]
